FAERS Safety Report 11011817 (Version 2)
Quarter: 2015Q2

REPORT INFORMATION
  Report Type: Report from Study
  Country: US (occurrence: US)
  Receive Date: 20150410
  Receipt Date: 20150421
  Transmission Date: 20150821
  Serious: Yes (Death)
  Sender: FDA-Public Use
  Company Number: US-AMGEN-USASL2015034901

PATIENT
  Age: 73 Year
  Sex: Male
  Weight: 72.11 kg

DRUGS (15)
  1. NORVASC [Concomitant]
     Active Substance: AMLODIPINE BESYLATE
     Indication: HYPERTENSION
     Dosage: 5 MG, BID
     Route: 048
     Dates: start: 20150315
  2. ACETAMINOPHEN. [Concomitant]
     Active Substance: ACETAMINOPHEN
     Indication: PROPHYLAXIS
     Dosage: 500 MG, BID
     Route: 048
  3. MILK OF MAGNESIA [Concomitant]
     Active Substance: MAGNESIUM HYDROXIDE
     Indication: ABDOMINAL DISTENSION
  4. KYPROLIS [Suspect]
     Active Substance: CARFILZOMIB
     Indication: PLASMA CELL MYELOMA
     Dosage: 35 MG, PER CHEMO REGIM
     Route: 042
     Dates: start: 20150318, end: 20150319
  5. INDERAL [Concomitant]
     Active Substance: PROPRANOLOL HYDROCHLORIDE
     Indication: HYPERTENSION
     Dosage: 80 MG, QD
     Route: 048
  6. ZOMETA [Concomitant]
     Active Substance: ZOLEDRONIC ACID
     Indication: HYPERCALCAEMIA
     Dosage: 3 MG, UNK
     Route: 042
     Dates: start: 20120430
  7. CORICIDIN                          /00070002/ [Concomitant]
     Indication: PAIN
  8. ASPIRIN. [Concomitant]
     Active Substance: ASPIRIN
     Indication: ANTICOAGULANT THERAPY
     Dosage: 81 MG, QD
     Route: 048
     Dates: start: 20131218
  9. BACTRIM DS [Concomitant]
     Active Substance: SULFAMETHOXAZOLE\TRIMETHOPRIM
     Indication: PROPHYLAXIS
     Dosage: 800 MG, 3 TIMES/WK
     Route: 048
  10. ZOMETA [Concomitant]
     Active Substance: ZOLEDRONIC ACID
     Indication: METASTASIS
  11. CORICIDIN                          /00070002/ [Concomitant]
     Indication: RHINORRHOEA
     Dosage: 325 MG, AS NECESSARY
     Route: 048
  12. DECADRON [Concomitant]
     Active Substance: DEXAMETHASONE
     Dosage: 40 MG, PER CHEMO REGIM
     Route: 048
     Dates: start: 20150318
  13. MILK OF MAGNESIA [Concomitant]
     Active Substance: MAGNESIUM HYDROXIDE
     Indication: CONSTIPATION
     Dosage: 2 UNK, AS NECESSARY
     Route: 048
  14. TYLENOL [Concomitant]
     Active Substance: ACETAMINOPHEN
  15. IMODIUM [Concomitant]
     Active Substance: LOPERAMIDE HYDROCHLORIDE
     Indication: DIARRHOEA
     Dosage: 2 MG, AS NECESSARY

REACTIONS (1)
  - Death [Fatal]

NARRATIVE: CASE EVENT DATE: 20150323
